FAERS Safety Report 5354173-7 (Version None)
Quarter: 2007Q2

REPORT INFORMATION
  Report Type: 
  Country: None (occurrence: None)
  Receive Date: 20070521
  Receipt Date: 20070410
  Transmission Date: 20071010
  Serious: No
  Sender: FDA-Public Use
  Company Number: WAES 0704USA02166

PATIENT
  Age: 50 Year
  Sex: Female
  Weight: 83.0083 kg

DRUGS (11)
  1. JANUVIA [Suspect]
     Indication: DIABETES MELLITUS NON-INSULIN-DEPENDENT
     Dosage: 100 MG/DAILY/PO
     Route: 048
     Dates: start: 20070101, end: 20070101
  2. ACTOPLUS MET [Concomitant]
  3. CELEBREX [Concomitant]
  4. CYMBALTA [Concomitant]
  5. DIOVAN HCT [Concomitant]
  6. PRILOSEC [Concomitant]
  7. QUESTRAN LIGHT [Concomitant]
  8. TOPORL XL TABLETS [Concomitant]
  9. VERELAN [Concomitant]
  10. VYTORIN [Concomitant]
  11. NIACIN [Concomitant]

REACTIONS (1)
  - HYPOAESTHESIA [None]
